FAERS Safety Report 23739742 (Version 1)
Quarter: 2024Q2

REPORT INFORMATION
  Report Type: Spontaneous
  Country: FR (occurrence: FR)
  Receive Date: 20240414
  Receipt Date: 20240414
  Transmission Date: 20240716
  Serious: Yes (Hospitalization, Other)
  Sender: FDA-Public Use
  Company Number: FR-AstraZeneca-2013SE14389

PATIENT
  Age: 71 Year
  Sex: Male

DRUGS (9)
  1. CAPRELSA [Suspect]
     Active Substance: VANDETANIB
     Indication: Medullary thyroid cancer
     Dosage: 300 MG,QD
     Route: 048
     Dates: start: 20120621, end: 20120729
  2. CAPRELSA [Suspect]
     Active Substance: VANDETANIB
     Indication: Metastases to lung
     Dosage: 100 MG,QD
     Route: 048
     Dates: start: 20120914, end: 20121214
  3. CAPRELSA [Suspect]
     Active Substance: VANDETANIB
     Indication: Metastases to liver
  4. LEVOTHYROXINE [Concomitant]
     Active Substance: LEVOTHYROXINE\LEVOTHYROXINE SODIUM
     Dosage: 75 UG,QD
  5. POTASSIUM CHLORIDE [Concomitant]
     Active Substance: POTASSIUM CHLORIDE
     Dosage: 1 DF,QD
  6. METRONIDAZOLE [Concomitant]
     Active Substance: METRONIDAZOLE
     Dosage: 1 G,QD
  7. ACTONEL [Concomitant]
     Active Substance: RISEDRONATE SODIUM
     Dosage: UNK UNK,UNK
  8. BION 3 [ASCORBIC ACID;BIFIDOBACTERIUM BIFIDUM;BIFIDOBACTERIUM LONGUM;B [Concomitant]
     Dosage: 1 DF,QD
  9. BION [Concomitant]
     Dosage: 1 DF, QD

REACTIONS (2)
  - Crohn^s disease [Recovering/Resolving]
  - Photosensitivity reaction [Recovered/Resolved]

NARRATIVE: CASE EVENT DATE: 20120729
